FAERS Safety Report 6211478-5 (Version None)
Quarter: 2009Q2

REPORT INFORMATION
  Report Type: 
  Country: None (occurrence: None)
  Receive Date: 20090602
  Receipt Date: 20090401
  Transmission Date: 20091009
  Serious: Yes (Other)
  Sender: FDA-Public Use
  Company Number: AU-JNJFOC-20090506939

PATIENT
  Sex: Male

DRUGS (2)
  1. REMICADE [Suspect]
     Route: 042
  2. REMICADE [Suspect]
     Indication: DRUG USE FOR UNKNOWN INDICATION
     Route: 042

REACTIONS (6)
  - BALANCE DISORDER [None]
  - BLOOD GLUCOSE INCREASED [None]
  - DIZZINESS [None]
  - HYPERHIDROSIS [None]
  - INFUSION RELATED REACTION [None]
  - URTICARIA [None]
